FAERS Safety Report 4413218-9 (Version None)
Quarter: 2004Q3

REPORT INFORMATION
  Report Type: 
  Country: None (occurrence: None)
  Receive Date: 20040730
  Receipt Date: 20040730
  Transmission Date: 20050211
  Serious: Yes (Death, Other)
  Sender: FDA-Public Use
  Company Number: None

PATIENT
  Age: 73 Year
  Sex: Male

DRUGS (1)
  1. WARFARIN SODIUM [Suspect]

REACTIONS (7)
  - CHEST WALL PAIN [None]
  - HAEMATOCRIT DECREASED [None]
  - HAEMATURIA [None]
  - METASTASES TO LIVER [None]
  - METASTASES TO LUNG [None]
  - OSTEOLYSIS [None]
  - RESPIRATORY DISTRESS [None]
